FAERS Safety Report 4422298-6 (Version None)
Quarter: 2004Q3

REPORT INFORMATION
  Report Type: 
  Country: None (occurrence: None)
  Receive Date: 20040810
  Receipt Date: 20040727
  Transmission Date: 20050211
  Serious: Yes (Other)
  Sender: FDA-Public Use
  Company Number: AU-MERCK-0407AUS00097

PATIENT
  Age: 38 Year
  Sex: Male
  Weight: 60 kg

DRUGS (20)
  1. ACETAMINOPHEN AND CODEINE PHOSPHATE [Concomitant]
     Route: 048
  2. ALBUTEROL [Concomitant]
     Route: 055
  3. ALPRAZOLAM [Concomitant]
     Route: 048
  4. ASPIRIN [Concomitant]
     Route: 048
  5. ATENOLOL [Concomitant]
     Route: 048
  6. CLOPIDOGREL BISULFATE [Concomitant]
     Route: 048
  7. EFAVIRENZ [Concomitant]
     Indication: HIV INFECTION
     Route: 048
  8. ZETIA [Suspect]
     Indication: PROPHYLAXIS
     Route: 048
     Dates: start: 20040609, end: 20040701
  9. FISH OIL (UNSPECIFIED) [Concomitant]
     Route: 048
  10. GABAPENTIN [Concomitant]
     Route: 048
  11. LANSOPRAZOLE [Concomitant]
     Route: 048
  12. LEVOTHYROXINE SODIUM [Concomitant]
     Route: 048
  13. LOPINAVIR AND RITONAVIR [Concomitant]
     Route: 048
  14. MIRTAZAPINE [Concomitant]
     Route: 048
  15. MUPIROCIN [Concomitant]
     Route: 061
  16. NITROGLYCERIN [Concomitant]
     Indication: CHEST PAIN
     Route: 055
  17. PERINDOPRIL ERBUMINE [Concomitant]
     Route: 048
  18. PRAVASTATIN SODIUM [Concomitant]
     Route: 048
  19. PROCHLORPERAZINE MALEATE [Concomitant]
     Route: 048
  20. VALACYCLOVIR HYDROCHLORIDE [Concomitant]
     Route: 048

REACTIONS (4)
  - BLOOD CHOLESTEROL INCREASED [None]
  - BLOOD TRIGLYCERIDES INCREASED [None]
  - DRUG INEFFECTIVE [None]
  - DRUG INTERACTION [None]
